FAERS Safety Report 23757588 (Version 7)
Quarter: 2024Q3

REPORT INFORMATION
  Report Type: Spontaneous
  Country: US (occurrence: US)
  Receive Date: 20240418
  Receipt Date: 20240911
  Transmission Date: 20241017
  Serious: No
  Sender: PFIZER
  Company Number: US-PFIZER INC-202400082817

PATIENT
  Age: 10 Year
  Sex: Female
  Weight: 29.48 kg

DRUGS (2)
  1. GENOTROPIN [Suspect]
     Active Substance: SOMATROPIN
     Indication: Hypopituitarism
     Dosage: 1.0 MG, DAILY
     Dates: start: 202303
  2. GENOTROPIN [Suspect]
     Active Substance: SOMATROPIN
     Indication: Growth hormone deficiency
     Dosage: 1.2 MG/DAY 7 DAYS/WK

REACTIONS (6)
  - Device use error [Unknown]
  - Drug administered in wrong device [Unknown]
  - Device issue [Unknown]
  - Device breakage [Unknown]
  - Device malfunction [Unknown]
  - Drug dose omission by device [Unknown]
